FAERS Safety Report 18646706 (Version 3)
Quarter: 2020Q4

REPORT INFORMATION
  Report Type: Spontaneous
  Country: GB (occurrence: GB)
  Receive Date: 20201222
  Receipt Date: 20201231
  Transmission Date: 20210114
  Serious: Yes (Disabling)
  Sender: FDA-Public Use
  Company Number: GB-009507513-2012GBR009311

PATIENT
  Age: 45 Year
  Sex: Female
  Weight: 64 kg

DRUGS (1)
  1. MOMETASONE FUROATE. [Suspect]
     Active Substance: MOMETASONE FUROATE
     Indication: ECZEMA
     Dosage: UNK, PRN
     Route: 061
     Dates: start: 20080603, end: 20190328

REACTIONS (10)
  - Feeling cold [Not Recovered/Not Resolved]
  - Eye swelling [Not Recovered/Not Resolved]
  - Steroid withdrawal syndrome [Unknown]
  - Pruritus [Not Recovered/Not Resolved]
  - Skin weeping [Not Recovered/Not Resolved]
  - Rash [Not Recovered/Not Resolved]
  - Skin exfoliation [Not Recovered/Not Resolved]
  - Night sweats [Not Recovered/Not Resolved]
  - Ear pruritus [Not Recovered/Not Resolved]
  - Swelling face [Not Recovered/Not Resolved]
